FAERS Safety Report 13201102 (Version 3)
Quarter: 2017Q1

REPORT INFORMATION
  Report Type: Spontaneous
  Country: AU (occurrence: AU)
  Receive Date: 20170208
  Receipt Date: 20170315
  Transmission Date: 20170428
  Serious: Yes (Hospitalization)
  Sender: FDA-Public Use
  Company Number: AU-ASTRAZENECA-2017SE12760

PATIENT
  Age: 27049 Day
  Sex: Female

DRUGS (4)
  1. BYDUREON [Suspect]
     Active Substance: EXENATIDE
     Indication: TYPE 2 DIABETES MELLITUS
     Route: 058
     Dates: start: 20161122, end: 20161220
  2. SOMAC [Concomitant]
     Active Substance: PANTOPRAZOLE SODIUM
  3. COVERSYL [Concomitant]
     Active Substance: PERINDOPRIL
     Dosage: 2.5
  4. BYETTA [Suspect]
     Active Substance: EXENATIDE
     Indication: TYPE 2 DIABETES MELLITUS
     Route: 058
     Dates: end: 20161121

REACTIONS (17)
  - Flushing [Unknown]
  - Vertigo [Unknown]
  - Abnormal behaviour [Unknown]
  - Speech disorder [Unknown]
  - Meningioma [Unknown]
  - Hyperhidrosis [Unknown]
  - Abdominal pain [Unknown]
  - Cerebral small vessel ischaemic disease [Unknown]
  - Weight decreased [Unknown]
  - Pancreatitis [Recovering/Resolving]
  - Pain [Unknown]
  - Photophobia [Unknown]
  - Headache [Unknown]
  - Blood electrolytes decreased [Unknown]
  - Hypotension [Unknown]
  - Decreased appetite [Unknown]
  - Cerebrovascular accident [Unknown]

NARRATIVE: CASE EVENT DATE: 20161224
